FAERS Safety Report 8278586 (Version 5)
Quarter: 2019Q3

REPORT INFORMATION
  Report Type: Report from Study
  Country: PL (occurrence: PL)
  Receive Date: 20111207
  Receipt Date: 20190714
  Transmission Date: 20191005
  Serious: Yes (Hospitalization)
  Sender: FDA-Public Use
  Company Number: PL-UCBSA-046685

PATIENT
  Age: 55 Year
  Sex: Male
  Weight: 76 kg

DRUGS (13)
  1. HYGROTON [Concomitant]
     Active Substance: CHLORTHALIDONE
     Indication: HYPERTENSION
     Dosage: 25 MG, ONCE DAILY (QD)
     Dates: start: 1995
  2. DETRALEX [Concomitant]
     Active Substance: DIOSMIN\HESPERIDIN
     Indication: PERIPHERAL VENOUS DISEASE
     Dosage: 450 MG, 2X/DAY (BID)
     Dates: start: 2010
  3. LACIPRIL [Concomitant]
     Indication: HYPERTENSION
     Dosage: 4 MG, ONCE DAILY (QD)
     Dates: start: 1995
  4. HELICOIL [Concomitant]
     Indication: GASTRIC ULCER
     Dosage: 20 MG, ONCE DAILY (QD)
     Dates: start: 2005
  5. XALATAN [Concomitant]
     Active Substance: LATANOPROST
     Indication: GLAUCOMA
     Dosage: 2 DROP
     Dates: start: 1997
  6. KALIPOZ PROLONGATUM [Concomitant]
     Active Substance: POTASSIUM CHLORIDE
     Indication: MINERAL SUPPLEMENTATION
     Dosage: 391 MG, ONCE DAILY (QD)
     Dates: start: 20110405
  7. TULIP [Concomitant]
     Indication: HYPERCHOLESTEROLAEMIA
     Dosage: 20 MG, ONCE DAILY (QD)
     Dates: start: 20110530
  8. METHOTREXATE. [Concomitant]
     Active Substance: METHOTREXATE
     Indication: AXIAL SPONDYLOARTHRITIS
     Dosage: 15 MG, WEEKLY (QW)
     Dates: start: 200701, end: 20111020
  9. NAKLOFEN DUO [Concomitant]
     Indication: SPONDYLITIS
     Dosage: 75 MG, 2X/DAY (BID)
     Dates: start: 201008
  10. BISOCARD [Concomitant]
     Active Substance: BISOPROLOL
     Indication: HYPERTENSION
     Dosage: 5 MG, ONCE DAILY (QD)
     Dates: start: 1995
  11. CERTOLIZUMAB PEGOL VS PLACEBO [Suspect]
     Active Substance: CERTOLIZUMAB PEGOL
     Indication: AXIAL SPONDYLOARTHRITIS
     Route: 058
     Dates: start: 20101118, end: 20111017
  12. ACIDUM FOLICUM [Concomitant]
     Active Substance: FOLIC ACID
     Indication: ANAEMIA
     Dosage: 15 MG, QS
     Dates: start: 200405, end: 20111020
  13. ACUPRO [Concomitant]
     Indication: HYPERTENSION
     Dosage: 20 MG, ONCE DAILY (QD)
     Dates: start: 1995

REACTIONS (1)
  - Latent tuberculosis [Recovered/Resolved]

NARRATIVE: CASE EVENT DATE: 20111020
